FAERS Safety Report 23605338 (Version 4)
Quarter: 2024Q2

REPORT INFORMATION
  Report Type: Spontaneous
  Country: US (occurrence: US)
  Receive Date: 20240307
  Receipt Date: 20240501
  Transmission Date: 20240715
  Serious: No
  Sender: FDA-Public Use
  Company Number: US-PFIZER INC-202400047391

PATIENT
  Age: 15 Year
  Sex: Male

DRUGS (1)
  1. GENOTROPIN [Suspect]
     Active Substance: SOMATROPIN
     Indication: Growth hormone deficiency
     Dosage: 2.8 MG, 1X/DAY
     Dates: start: 2023

REACTIONS (3)
  - Device breakage [Unknown]
  - Drug dose omission by device [Unknown]
  - Poor quality device used [Unknown]
